FAERS Safety Report 7361078-9 (Version None)
Quarter: 2011Q1

REPORT INFORMATION
  Report Type: 
  Country: None (occurrence: None)
  Receive Date: 20110318
  Receipt Date: 20110120
  Transmission Date: 20110831
  Serious: No
  Sender: FDA-Public Use
  Company Number: US-BAYER-2011-007830

PATIENT
  Sex: Female

DRUGS (2)
  1. ALEVE (CAPLET) [Suspect]
     Indication: BACK PAIN
     Dosage: BOTTLE COUNT 24S
     Route: 048
  2. ALEVE (CAPLET) [Suspect]
     Indication: HEADACHE

REACTIONS (3)
  - CONSTIPATION [None]
  - HEADACHE [None]
  - BACK PAIN [None]
